FAERS Safety Report 7012836-1 (Version None)
Quarter: 2010Q3

REPORT INFORMATION
  Report Type: 
  Country: None (occurrence: None)
  Receive Date: 20100924
  Receipt Date: 20100916
  Transmission Date: 20110219
  Serious: Yes (Other)
  Sender: FDA-Public Use
  Company Number: B0675960A

PATIENT
  Age: 28 Year
  Sex: Male

DRUGS (2)
  1. TYVERB [Suspect]
     Indication: BREAST CANCER
     Route: 065
     Dates: start: 20080101
  2. XELODA [Suspect]
     Route: 065
     Dates: start: 20080101

REACTIONS (2)
  - DIARRHOEA [None]
  - SKIN TOXICITY [None]
